FAERS Safety Report 9559368 (Version 1)
Quarter: 2013Q3

REPORT INFORMATION
  Report Type: Spontaneous
  Country: US (occurrence: None)
  Receive Date: 20130913
  Receipt Date: 20130913
  Transmission Date: 20140515
  Serious: No
  Sender: FDA-Public Use
  Company Number: 1000044409

PATIENT
  Age: 73 Year
  Sex: Female

DRUGS (2)
  1. DALIRESP (ROFLUMILAST) (500 MICROGRAM, TABLETS) [Suspect]
     Indication: CHRONIC OBSTRUCTIVE PULMONARY DISEASE
     Dosage: 1 IN 1 D
     Route: 048
     Dates: start: 20130410
  2. DALIRESP (ROFLUMILAST) (500 MICROGRAM, TABLETS) [Suspect]
     Indication: BRONCHITIS
     Dosage: 1 IN 1 D
     Route: 048
     Dates: start: 20130410

REACTIONS (4)
  - Insomnia [None]
  - Pain [None]
  - Decreased appetite [None]
  - Nausea [None]
